FAERS Safety Report 8887283 (Version 1)
Quarter: 2012Q4

REPORT INFORMATION
  Report Type: Spontaneous
  Country: US (occurrence: None)
  Receive Date: 20121105
  Receipt Date: 20121105
  Transmission Date: 20130627
  Serious: Yes (Hospitalization)
  Sender: FDA-Public Use
  Company Number: None

PATIENT
  Age: 61 Year
  Sex: Female
  Weight: 89.36 kg

DRUGS (1)
  1. TRIAMCINOLONE [Suspect]
     Dosage: once in each knee
     Route: 014

REACTIONS (3)
  - Arthralgia [None]
  - Injection site pain [None]
  - Injection site pain [None]
